FAERS Safety Report 9986314 (Version 1)
Quarter: 2014Q1

REPORT INFORMATION
  Report Type: Report from Study
  Country: US (occurrence: US)
  Receive Date: 20140307
  Receipt Date: 20140307
  Transmission Date: 20141002
  Serious: No
  Sender: FDA-Public Use
  Company Number: US-ABBVIE-13P-163-1087238-00

PATIENT
  Age: 65 Year
  Sex: Male

DRUGS (9)
  1. HUMIRA [Suspect]
     Indication: CROHN^S DISEASE
     Dates: start: 20130220
  2. MS CONTIN [Concomitant]
     Indication: PAIN
  3. MS CONTIN [Concomitant]
     Indication: ARTHRITIS
  4. PRILOSEC [Concomitant]
     Indication: GASTROOESOPHAGEAL REFLUX DISEASE
  5. DICYCLOMINE [Concomitant]
     Indication: FLATULENCE
  6. DICYCLOMINE [Concomitant]
  7. IMODIUM [Concomitant]
     Indication: DIARRHOEA
     Dosage: DAILY
  8. VITAMIN D NOS [Concomitant]
     Indication: PRODUCT USED FOR UNKNOWN INDICATION
  9. VITAMIN B12 NOS [Concomitant]
     Indication: PRODUCT USED FOR UNKNOWN INDICATION

REACTIONS (5)
  - Abdominal pain [Not Recovered/Not Resolved]
  - Anaemia [Unknown]
  - Quality of life decreased [Unknown]
  - Decreased appetite [Unknown]
  - Flatulence [Unknown]
